FAERS Safety Report 5910574-7 (Version None)
Quarter: 2008Q4

REPORT INFORMATION
  Report Type: 
  Country: None (occurrence: None)
  Receive Date: 20081007
  Receipt Date: 20080324
  Transmission Date: 20090506
  Serious: Yes (Other)
  Sender: FDA-Public Use
  Company Number: US-ASTRAZENECA-2008UW05929

PATIENT
  Age: 74 Year
  Sex: Female
  Weight: 65.8 kg

DRUGS (9)
  1. ARIMIDEX [Suspect]
     Indication: BREAST CANCER
     Route: 048
     Dates: start: 20080307
  2. NEXIUM [Concomitant]
  3. MOBIC [Concomitant]
  4. CELEXA [Concomitant]
  5. ALLEGRA [Concomitant]
  6. NEURONTIN [Concomitant]
  7. HYDROCHLOROTHIAZIDE [Concomitant]
  8. FOSAMAX [Concomitant]
  9. LUNESTA [Concomitant]

REACTIONS (2)
  - ALANINE AMINOTRANSFERASE INCREASED [None]
  - ASPARTATE AMINOTRANSFERASE INCREASED [None]
